FAERS Safety Report 7893960-8 (Version None)
Quarter: 2011Q4

REPORT INFORMATION
  Report Type: 
  Country: None (occurrence: None)
  Receive Date: 20111104
  Receipt Date: 20111026
  Transmission Date: 20120403
  Serious: No
  Sender: FDA-Public Use
  Company Number: US-B.I. PHARMACEUTICALS,INC./RIDGEFIELD-2011-BP-25022BP

PATIENT
  Sex: Female

DRUGS (8)
  1. STERLAINE [Concomitant]
     Indication: THYROID DISORDER
  2. CELEBREX [Concomitant]
     Indication: ARTHRITIS
  3. SPIRIVA [Suspect]
     Indication: CHRONIC OBSTRUCTIVE PULMONARY DISEASE
     Dosage: 18 MCG
     Route: 048
     Dates: start: 20111026, end: 20111026
  4. SPIRIVA [Suspect]
     Dosage: 18 MCG
     Route: 055
  5. LIPITOR [Concomitant]
     Indication: BLOOD CHOLESTEROL INCREASED
  6. VERAPAMIL [Concomitant]
     Indication: HYPERTENSION
  7. NEXIUM [Concomitant]
     Indication: HERNIA
  8. ASPIRIN [Concomitant]
     Indication: PROPHYLAXIS

REACTIONS (1)
  - INCORRECT ROUTE OF DRUG ADMINISTRATION [None]
